FAERS Safety Report 4749967-2 (Version None)
Quarter: 2005Q3

REPORT INFORMATION
  Report Type: 
  Country: None (occurrence: None)
  Receive Date: 20050822
  Receipt Date: 20050503
  Transmission Date: 20060218
  Serious: Yes (Death, Hospitalization)
  Sender: FDA-Public Use
  Company Number: US-MERCK-0505USA00523

PATIENT
  Age: 66 Year
  Sex: Female

DRUGS (6)
  1. TYLENOL [Concomitant]
     Route: 065
  2. ELAVIL [Concomitant]
     Route: 065
  3. FOSAMAX [Concomitant]
     Indication: OSTEOPOROSIS
     Route: 048
  4. PREMARIN [Concomitant]
     Route: 065
     Dates: end: 20030101
  5. VIOXX [Suspect]
     Indication: OSTEOARTHRITIS
     Route: 048
  6. VIOXX [Suspect]
     Indication: FIBROMYALGIA
     Route: 048

REACTIONS (20)
  - AORTIC VALVE INCOMPETENCE [None]
  - ATRIAL FLUTTER [None]
  - BRONCHOPNEUMONIA [None]
  - CARDIAC ARREST [None]
  - CHRONIC OBSTRUCTIVE PULMONARY DISEASE [None]
  - CONFUSIONAL STATE [None]
  - DEPRESSION [None]
  - DIZZINESS [None]
  - FLANK PAIN [None]
  - HEADACHE [None]
  - LEUKOCYTOSIS [None]
  - MYOCARDIAL INFARCTION [None]
  - NAUSEA [None]
  - RENAL INFARCT [None]
  - RESPIRATORY DISTRESS [None]
  - RESPIRATORY FAILURE [None]
  - STAPHYLOCOCCAL INFECTION [None]
  - SUPRAVENTRICULAR TACHYCARDIA [None]
  - VOMITING [None]
  - WEIGHT DECREASED [None]
